FAERS Safety Report 25472948 (Version 1)
Quarter: 2025Q2

REPORT INFORMATION
  Report Type: Spontaneous
  Country: VN (occurrence: VN)
  Receive Date: 20250624
  Receipt Date: 20250624
  Transmission Date: 20250717
  Serious: Yes (Life-Threatening, Other)
  Sender: SANDOZ
  Company Number: VN-002147023-NVSC2023VN226143

PATIENT
  Age: 29 Year
  Sex: Female

DRUGS (12)
  1. CARBOPLATIN [Suspect]
     Active Substance: CARBOPLATIN
     Route: 065
     Dates: start: 202207, end: 202208
  2. CARBOPLATIN [Suspect]
     Active Substance: CARBOPLATIN
     Indication: Breast cancer
     Route: 065
     Dates: start: 202012, end: 202109
  3. DOCETAXEL [Suspect]
     Active Substance: DOCETAXEL
     Indication: Breast cancer
     Route: 065
     Dates: start: 201401, end: 201408
  4. DOXORUBICIN [Suspect]
     Active Substance: DOXORUBICIN
     Indication: Breast cancer
     Route: 065
     Dates: start: 201401, end: 201408
  5. GEMCITABINE [Suspect]
     Active Substance: GEMCITABINE
     Indication: Breast cancer
     Route: 065
     Dates: start: 202207, end: 202208
  6. GOSERELIN [Suspect]
     Active Substance: GOSERELIN
     Indication: Malignant pleural effusion
     Route: 065
     Dates: start: 202209, end: 202308
  7. GOSERELIN [Suspect]
     Active Substance: GOSERELIN
     Indication: Hormone receptor positive HER2 negative breast cancer
  8. LETROZOLE [Suspect]
     Active Substance: LETROZOLE
     Indication: Malignant pleural effusion
     Route: 065
     Dates: start: 202209, end: 202308
  9. LETROZOLE [Suspect]
     Active Substance: LETROZOLE
     Indication: Hormone receptor positive HER2 negative breast cancer
  10. PACLITAXEL [Suspect]
     Active Substance: PACLITAXEL
     Indication: Breast cancer
     Route: 065
     Dates: start: 202012, end: 202109
  11. RIBOCICLIB [Suspect]
     Active Substance: RIBOCICLIB
     Indication: Malignant pleural effusion
     Route: 065
     Dates: start: 202209, end: 202308
  12. RIBOCICLIB [Suspect]
     Active Substance: RIBOCICLIB
     Indication: Hormone receptor positive HER2 negative breast cancer

REACTIONS (9)
  - Neutropenia [Unknown]
  - Metastases to lung [Unknown]
  - Thrombocytopenia [Unknown]
  - Hormone receptor positive HER2 negative breast cancer [Unknown]
  - Malignant neoplasm progression [Unknown]
  - Atelectasis [Unknown]
  - Dyspnoea [Unknown]
  - Pleural effusion [Unknown]
  - Drug ineffective [Unknown]
